FAERS Safety Report 13965480 (Version 2)
Quarter: 2017Q4

REPORT INFORMATION
  Report Type: Spontaneous
  Country: US (occurrence: US)
  Receive Date: 20170913
  Receipt Date: 20171024
  Transmission Date: 20180320
  Serious: No
  Sender: FDA-Public Use
  Company Number: US-ELI_LILLY_AND_COMPANY-US201709003403

PATIENT
  Age: 68 Year
  Sex: Female
  Weight: 97.51 kg

DRUGS (1)
  1. TALTZ [Suspect]
     Active Substance: IXEKIZUMAB
     Indication: PSORIASIS
     Dosage: 80 MG,INDUCTION
     Route: 058
     Dates: start: 20170601

REACTIONS (4)
  - Rash erythematous [Unknown]
  - Skin exfoliation [Unknown]
  - Rash [Unknown]
  - Skin candida [Unknown]
